FAERS Safety Report 5661317-6 (Version None)
Quarter: 2008Q1

REPORT INFORMATION
  Report Type: 
  Country: None (occurrence: None)
  Receive Date: 20080312
  Receipt Date: 20080229
  Transmission Date: 20080703
  Serious: Yes (Other)
  Sender: FDA-Public Use
  Company Number: US-JNJFOC-20080301992

PATIENT
  Sex: Male
  Weight: 0.98 kg

DRUGS (1)
  1. INFLIXIMAB [Suspect]
     Indication: DRUG EXPOSURE DURING PREGNANCY
     Route: 015

REACTIONS (1)
  - PREMATURE BABY [None]
